FAERS Safety Report 5477653-2 (Version None)
Quarter: 2007Q4

REPORT INFORMATION
  Report Type: 
  Country: None (occurrence: None)
  Receive Date: 20071002
  Receipt Date: 20070913
  Transmission Date: 20080405
  Serious: Yes (Other)
  Sender: FDA-Public Use
  Company Number: ENT 2007-0161

PATIENT
  Age: 71 Year
  Sex: Female

DRUGS (3)
  1. COMTAN [Suspect]
     Indication: PARKINSON'S DISEASE
     Dosage: 500 MG (500 MG, 1 IN 1 D); 300 MG (300 MG,1 IN 1 D); 400 MG (400 MG,1 IN 1 D)
     Route: 048
     Dates: start: 20070530, end: 20070604
  2. COMTAN [Suspect]
     Indication: PARKINSON'S DISEASE
     Dosage: 500 MG (500 MG, 1 IN 1 D); 300 MG (300 MG,1 IN 1 D); 400 MG (400 MG,1 IN 1 D)
     Route: 048
     Dates: start: 20070605, end: 20070716
  3. COMTAN [Suspect]
     Indication: PARKINSON'S DISEASE
     Dosage: 500 MG (500 MG, 1 IN 1 D); 300 MG (300 MG,1 IN 1 D); 400 MG (400 MG,1 IN 1 D)
     Route: 048
     Dates: start: 20070717

REACTIONS (2)
  - DYSKINESIA [None]
  - HALLUCINATION, VISUAL [None]
